FAERS Safety Report 7406002-5 (Version None)
Quarter: 2011Q2

REPORT INFORMATION
  Report Type: 
  Country: None (occurrence: None)
  Receive Date: 20110411
  Receipt Date: 20110407
  Transmission Date: 20111010
  Serious: Yes (Hospitalization)
  Sender: FDA-Public Use
  Company Number: A0886394A

PATIENT
  Age: 64 Year
  Sex: Female
  Weight: 113.2 kg

DRUGS (14)
  1. NITROGLYCERIN [Concomitant]
  2. COMBIVENT [Concomitant]
  3. GLUCOPHAGE [Concomitant]
  4. LORTAB [Concomitant]
  5. TOPROL-XL [Concomitant]
  6. AVANDIA [Suspect]
     Dosage: 8MG PER DAY
     Route: 048
     Dates: start: 20030101, end: 20090101
  7. LASIX [Concomitant]
  8. PROVENTIL [Concomitant]
  9. LOVAZA [Concomitant]
  10. CRESTOR [Concomitant]
  11. ASPIRIN [Concomitant]
  12. ALPRAZOLAM [Concomitant]
  13. GLYBURIDE [Concomitant]
  14. ALDACTONE [Concomitant]

REACTIONS (3)
  - CARDIAC PACEMAKER INSERTION [None]
  - MYOCARDIAL INFARCTION [None]
  - CARDIAC FAILURE CONGESTIVE [None]
